FAERS Safety Report 24289093 (Version 4)
Quarter: 2024Q4

REPORT INFORMATION
  Report Type: Report from Study
  Country: US (occurrence: US)
  Receive Date: 20240906
  Receipt Date: 20241213
  Transmission Date: 20250115
  Serious: Yes (Other)
  Sender: SANDOZ
  Company Number: US-002147023-NVSC2020US083517

PATIENT
  Age: 53 Year
  Sex: Female
  Weight: 89.342 kg

DRUGS (47)
  1. ASCORBIC ACID [Suspect]
     Active Substance: ASCORBIC ACID
     Indication: Product used for unknown indication
     Route: 065
  2. BUSPIRONE HCL [Suspect]
     Active Substance: BUSPIRONE HYDROCHLORIDE
     Indication: Product used for unknown indication
     Route: 065
  3. ASCORBIC ACID [Suspect]
     Active Substance: ASCORBIC ACID
     Indication: Product used for unknown indication
     Route: 065
  4. FLUOXETINE HYDROCHLORIDE [Suspect]
     Active Substance: FLUOXETINE HYDROCHLORIDE
     Indication: Product used for unknown indication
     Route: 065
  5. FUROSEMIDE [Suspect]
     Active Substance: FUROSEMIDE
     Indication: Product used for unknown indication
     Route: 065
  6. NEURONTIN [Suspect]
     Active Substance: GABAPENTIN
     Indication: Product used for unknown indication
     Route: 065
  7. POTASSIUM CHLORIDE [Suspect]
     Active Substance: POTASSIUM CHLORIDE
     Indication: Product used for unknown indication
     Route: 065
  8. PREVACID [Suspect]
     Active Substance: LANSOPRAZOLE
     Indication: Product used for unknown indication
     Route: 065
  9. QUETIAPINE FUMARATE [Suspect]
     Active Substance: QUETIAPINE FUMARATE
     Indication: Product used for unknown indication
     Route: 065
  10. SILVADENE [Suspect]
     Active Substance: SILVER SULFADIAZINE
     Indication: Product used for unknown indication
     Route: 065
  11. STRATTERA [Suspect]
     Active Substance: ATOMOXETINE HYDROCHLORIDE
     Indication: Product used for unknown indication
     Route: 065
  12. TREPROSTINIL [Suspect]
     Active Substance: TREPROSTINIL
     Dosage: 69 NG PER KG PER MIN CONTINUOUS
     Route: 042
  13. TREPROSTINIL [Suspect]
     Active Substance: TREPROSTINIL
     Dosage: 69 NG PER KG PER MIN
     Route: 042
  14. TREPROSTINIL [Suspect]
     Active Substance: TREPROSTINIL
     Indication: Pulmonary arterial hypertension
     Dosage: 65 NG/KG/MIN , CONT (STRENGTH: 1 MG/ML, 2.5 MG/ML)
     Route: 042
     Dates: start: 20190826
  15. TREPROSTINIL [Suspect]
     Active Substance: TREPROSTINIL
     Dosage: 69 NG/KG/MIN, CONT (STRENGTH: 2.5 MG/ML)
     Route: 042
  16. TREPROSTINIL [Suspect]
     Active Substance: TREPROSTINIL
     Dosage: 69 NG/KG/MIN, CONT (STRENGTH: 2.5 MG/ML)
     Route: 042
  17. TREPROSTINIL [Suspect]
     Active Substance: TREPROSTINIL
     Dosage: 69 NG/KG/MIN, CONT (STRENGTH: 2.5 MG/ML)
     Route: 042
     Dates: start: 20220119
  18. TREPROSTINIL [Suspect]
     Active Substance: TREPROSTINIL
     Dosage: 69 NG/KG/MIN, CONT (STRENGTH 1 MG/ML)
     Route: 042
  19. TREPROSTINIL [Suspect]
     Active Substance: TREPROSTINIL
     Dosage: 69 NG/KG/MIN,  CONT
     Route: 042
  20. TREPROSTINIL [Suspect]
     Active Substance: TREPROSTINIL
     Dosage: 69 NG/KG/MIN (STRENGTH 1 MG/ML), CONT
     Route: 058
  21. TREPROSTINIL [Suspect]
     Active Substance: TREPROSTINIL
     Dosage: 69 NG/KG/MIN, CONT
     Route: 042
  22. TREPROSTINIL [Suspect]
     Active Substance: TREPROSTINIL
     Dosage: 69 NG/KG/MIN, CONT
     Route: 042
  23. TREPROSTINIL [Suspect]
     Active Substance: TREPROSTINIL
     Dosage: 69 NG/KG/MIN, CONT (STRENGTH 1 MG/ML)
     Route: 042
  24. TOPAMAX [Suspect]
     Active Substance: TOPIRAMATE
     Indication: Product used for unknown indication
     Dosage: UNK
     Route: 065
  25. VITAMIN B COMPLEX [Suspect]
     Active Substance: CYANOCOBALAMIN\DEXPANTHENOL\NIACINAMIDE\PYRIDOXINE HYDROCHLORIDE\RIBOFLAVIN 5^-PHOSPHATE SODIUM\THIA
     Indication: Product used for unknown indication
     Route: 065
  26. VITAMIN B12 [Suspect]
     Active Substance: CYANOCOBALAMIN
     Indication: Product used for unknown indication
     Route: 065
  27. VITAMIN D3 [Suspect]
     Active Substance: CHOLECALCIFEROL
     Indication: Product used for unknown indication
     Route: 065
  28. WARFARIN SODIUM [Suspect]
     Active Substance: WARFARIN SODIUM
     Indication: Product used for unknown indication
     Route: 065
  29. WINREVAIR [Suspect]
     Active Substance: SOTATERCEPT-CSRK
     Indication: Product used for unknown indication
     Dosage: UNK
     Route: 065
  30. ZYPREXA [Suspect]
     Active Substance: OLANZAPINE
     Indication: Product used for unknown indication
     Route: 065
  31. ADCIRCA [Concomitant]
     Active Substance: TADALAFIL
     Indication: Pulmonary arterial hypertension
     Dosage: UNK
     Route: 065
  32. BOSENTAN [Concomitant]
     Active Substance: BOSENTAN
     Indication: Pulmonary arterial hypertension
     Dosage: UNK
     Route: 065
  33. CICLOPIROX [Concomitant]
     Active Substance: CICLOPIROX
     Indication: Product used for unknown indication
     Route: 065
  34. CICLOPIROX [Concomitant]
     Active Substance: CICLOPIROX
     Indication: Product used for unknown indication
     Route: 065
  35. FERROUS SULFATE [Concomitant]
     Active Substance: FERROUS SULFATE
     Indication: Product used for unknown indication
     Route: 065
  36. FERROUS SULFATE [Concomitant]
     Active Substance: FERROUS SULFATE
     Indication: Product used for unknown indication
     Route: 065
  37. LEVOTHYROXINE SODIUM [Concomitant]
     Active Substance: LEVOTHYROXINE SODIUM
     Indication: Product used for unknown indication
     Route: 065
  38. LEVOTHYROXINE SODIUM [Concomitant]
     Active Substance: LEVOTHYROXINE SODIUM
     Indication: Product used for unknown indication
     Route: 065
  39. OXYGEN [Concomitant]
     Active Substance: OXYGEN
     Indication: Product used for unknown indication
     Route: 065
  40. OXYGEN [Concomitant]
     Active Substance: OXYGEN
     Indication: Product used for unknown indication
     Route: 065
  41. PROBIOTICS NOS [Concomitant]
     Active Substance: PROBIOTICS NOS
     Indication: Product used for unknown indication
     Route: 065
  42. PROBIOTICS NOS [Concomitant]
     Active Substance: PROBIOTICS NOS
     Indication: Product used for unknown indication
     Route: 065
  43. SPIRONOLACTONE [Concomitant]
     Active Substance: SPIRONOLACTONE
     Indication: Product used for unknown indication
     Route: 065
  44. SPIRONOLACTONE [Concomitant]
     Active Substance: SPIRONOLACTONE
     Indication: Product used for unknown indication
     Route: 065
  45. TRIAMCINOLONE ACETONIDE [Concomitant]
     Active Substance: TRIAMCINOLONE ACETONIDE
     Indication: Product used for unknown indication
     Route: 065
  46. TRIAMCINOLONE ACETONIDE [Concomitant]
     Active Substance: TRIAMCINOLONE ACETONIDE
     Indication: Product used for unknown indication
     Route: 065
  47. WARFARIN [Concomitant]
     Active Substance: WARFARIN
     Indication: Pulmonary arterial hypertension
     Dosage: UNK
     Route: 065

REACTIONS (23)
  - Haemorrhage [Unknown]
  - Erectile dysfunction [Unknown]
  - Eye infection [Unknown]
  - Cellulitis [Unknown]
  - Scab [Unknown]
  - Peripheral swelling [Unknown]
  - Oropharyngeal pain [Unknown]
  - Nasal congestion [Unknown]
  - Pyrexia [Recovering/Resolving]
  - Weight increased [Unknown]
  - Malaise [Unknown]
  - Catheter site haemorrhage [Unknown]
  - Complication associated with device [Unknown]
  - Sluggishness [Unknown]
  - COVID-19 [Recovering/Resolving]
  - Nasopharyngitis [Unknown]
  - Oxygen saturation decreased [Recovering/Resolving]
  - Epistaxis [Unknown]
  - Paraesthesia [Unknown]
  - Dizziness [Unknown]
  - Fatigue [Unknown]
  - Catheter site pain [Recovering/Resolving]
  - Catheter site erythema [Recovering/Resolving]

NARRATIVE: CASE EVENT DATE: 20220721
